FAERS Safety Report 15609431 (Version 1)
Quarter: 2018Q4

REPORT INFORMATION
  Report Type: Spontaneous
  Country: DE (occurrence: DE)
  Receive Date: 20181112
  Receipt Date: 20181112
  Transmission Date: 20190205
  Serious: Yes (Congenital Anomaly)
  Sender: FDA-Public Use
  Company Number: DE-MYLANLABS-2018M1084874

PATIENT
  Age: 1 Day
  Sex: Male
  Weight: 3.21 kg

DRUGS (2)
  1. ESCITALOPRAM [Suspect]
     Active Substance: ESCITALOPRAM OXALATE
     Indication: ADJUSTMENT DISORDER
     Dosage: 15 [MG/D ]/ UNTIL GESTATIONAL WEEK 34 3/7: 15 MG, THEN 10 MG/D
     Route: 064
  2. FOLIO                              /07351001/ [Concomitant]
     Indication: PROPHYLAXIS OF NEURAL TUBE DEFECT
     Dosage: 0.4 [MG/D ]
     Route: 064
     Dates: start: 20160831, end: 20170604

REACTIONS (4)
  - Foetal exposure during pregnancy [Recovered/Resolved]
  - Pelvic kidney [Not Recovered/Not Resolved]
  - Renal dysplasia [Not Recovered/Not Resolved]
  - Congenital megaureter [Recovered/Resolved]

NARRATIVE: CASE EVENT DATE: 20170604
